FAERS Safety Report 7373331-3 (Version None)
Quarter: 2011Q1

REPORT INFORMATION
  Report Type: 
  Country: None (occurrence: None)
  Receive Date: 20110324
  Receipt Date: 20110317
  Transmission Date: 20110831
  Serious: Yes (Other)
  Sender: FDA-Public Use
  Company Number: US-RB-024123-11

PATIENT
  Age: 38 Year
  Sex: Male

DRUGS (2)
  1. SUBOXONE [Suspect]
     Indication: PRODUCT USED FOR UNKNOWN INDICATION
     Dosage: DOSING INFORMATION UNKNOWN
     Route: 065
     Dates: start: 20110315, end: 20110315
  2. SUBOXONE [Suspect]
     Indication: PRODUCT USED FOR UNKNOWN INDICATION
     Dosage: SUBOXONE SUBLINGUAL FILM; DOSING INFORMATION UNKNOWN
     Route: 065
     Dates: start: 20110316

REACTIONS (9)
  - SOMNOLENCE [None]
  - VOMITING [None]
  - HALLUCINATION [None]
  - ABNORMAL DREAMS [None]
  - EUPHORIC MOOD [None]
  - NAUSEA [None]
  - HEADACHE [None]
  - INSOMNIA [None]
  - NECK PAIN [None]
